FAERS Safety Report 16899922 (Version 1)
Quarter: 2019Q4

REPORT INFORMATION
  Report Type: Spontaneous
  Country: US (occurrence: US)
  Receive Date: 20190815
  Receipt Date: 20190815
  Transmission Date: 20200122
  Serious: Yes (Hospitalization)
  Sender: FDA-Public Use
  Company Number: None

PATIENT
  Age: 51 Year
  Sex: Female

DRUGS (12)
  1. AMBRISENTAN 10MG  TABLETS 30/BO: 10MG [Suspect]
     Active Substance: AMBRISENTAN
     Indication: PULMONARY ARTERIAL HYPERTENSION
     Route: 048
     Dates: start: 201901
  2. LISINOPRIL. [Concomitant]
     Active Substance: LISINOPRIL
  3. ASPIRIN. [Concomitant]
     Active Substance: ASPIRIN
  4. ATORVASTATIN [Concomitant]
     Active Substance: ATORVASTATIN
  5. FLUOXETINE [Concomitant]
     Active Substance: FLUOXETINE HYDROCHLORIDE
  6. DIVALPROEX [Concomitant]
     Active Substance: DIVALPROEX SODIUM
  7. PANTORPRAZOLE [Concomitant]
  8. TRAMADOL. [Concomitant]
     Active Substance: TRAMADOL
  9. TADALAFIL. [Concomitant]
     Active Substance: TADALAFIL
  10. VENTOLIN HFA [Concomitant]
     Active Substance: ALBUTEROL SULFATE
  11. MVI [Concomitant]
     Active Substance: VITAMINS
  12. QUETIAPINE. [Concomitant]
     Active Substance: QUETIAPINE

REACTIONS (9)
  - Angina pectoris [None]
  - Vomiting [None]
  - Diarrhoea [None]
  - Hypoxia [None]
  - Nausea [None]
  - Micturition urgency [None]
  - Gastroenteritis [None]
  - Urinary tract infection [None]
  - Asthma [None]

NARRATIVE: CASE EVENT DATE: 20190718
